FAERS Safety Report 5239078-4 (Version None)
Quarter: 2007Q1

REPORT INFORMATION
  Report Type: 
  Country: None (occurrence: None)
  Receive Date: 20070209
  Receipt Date: 20070129
  Transmission Date: 20070707
  Serious: Yes (Life-Threatening)
  Sender: FDA-Public Use
  Company Number: T200700101

PATIENT
  Age: 16 Week
  Sex: Male

DRUGS (1)
  1. OPTIRAY 160 [Suspect]
     Indication: UROGRAM
     Dosage: 12 ML, SINGLE, INTRAVENOUS
     Route: 042
     Dates: start: 20070119, end: 20070119

REACTIONS (5)
  - CYANOSIS [None]
  - HYPERHIDROSIS [None]
  - HYPOTENSION [None]
  - RESPIRATORY FAILURE [None]
  - SWELLING FACE [None]
